FAERS Safety Report 4986426-6 (Version None)
Quarter: 2006Q1

REPORT INFORMATION
  Report Type: 
  Country: None (occurrence: None)
  Receive Date: 20060309
  Receipt Date: 20051228
  Transmission Date: 20060701
  Serious: Yes (Hospitalization)
  Sender: FDA-Public Use
  Company Number: 349554

PATIENT
  Age: 18 Year
  Sex: Female

DRUGS (4)
  1. ACCUTANE [Suspect]
     Indication: ACNE
     Dosage: 40 MG DAILY ORAL
     Route: 048
     Dates: start: 19921118, end: 19990515
  2. ADVIL [Concomitant]
  3. DESOGEN (DESOGESTREL/ETHINYL ESTRADIOL) [Concomitant]
  4. ALEVE [Concomitant]

REACTIONS (29)
  - ABDOMINAL DISCOMFORT [None]
  - ABDOMINAL DISTENSION [None]
  - ABDOMINAL PAIN [None]
  - ABSCESS [None]
  - ALANINE AMINOTRANSFERASE INCREASED [None]
  - ARTHRALGIA [None]
  - ASPARTATE AMINOTRANSFERASE INCREASED [None]
  - BACK PAIN [None]
  - BLOOD CHOLESTEROL INCREASED [None]
  - BLOOD TRIGLYCERIDES INCREASED [None]
  - COLITIS ULCERATIVE [None]
  - CROHN'S DISEASE [None]
  - DERMATITIS [None]
  - DIARRHOEA [None]
  - DISTURBANCE IN ATTENTION [None]
  - DRY SKIN [None]
  - FATIGUE [None]
  - FLATULENCE [None]
  - INFLAMMATION [None]
  - INFLAMMATORY BOWEL DISEASE [None]
  - IRRITABLE BOWEL SYNDROME [None]
  - LIPOMA [None]
  - MENSTRUATION IRREGULAR [None]
  - MUSCULOSKELETAL DISCOMFORT [None]
  - OTITIS EXTERNA [None]
  - PROCTITIS [None]
  - PROCTOCOLITIS [None]
  - RECTAL HAEMORRHAGE [None]
  - WEIGHT DECREASED [None]
